FAERS Safety Report 20255202 (Version 1)
Quarter: 2021Q4

REPORT INFORMATION
  Report Type: Spontaneous
  Country: US (occurrence: None)
  Receive Date: 20211229
  Receipt Date: 20211229
  Transmission Date: 20220304
  Serious: Yes (Disabling)
  Sender: FDA-Public Use
  Company Number: None

PATIENT
  Age: 28 Year
  Sex: Female
  Weight: 128.37 kg

DRUGS (1)
  1. MIRENA [Suspect]
     Active Substance: LEVONORGESTREL

REACTIONS (10)
  - Hormone level abnormal [None]
  - Lethargy [None]
  - Milia [None]
  - Fatigue [None]
  - Fear of death [None]
  - Insomnia [None]
  - Headache [None]
  - Dizziness [None]
  - Bacterial vaginosis [None]
  - Fungal infection [None]

NARRATIVE: CASE EVENT DATE: 20210511
